FAERS Safety Report 22100977 (Version 2)
Quarter: 2023Q1

REPORT INFORMATION
  Report Type: Spontaneous
  Country: US (occurrence: US)
  Receive Date: 20230316
  Receipt Date: 20230330
  Transmission Date: 20230417
  Serious: Yes (Death, Hospitalization)
  Sender: FDA-Public Use
  Company Number: US-TEVA-2023-US-2864967

PATIENT
  Age: 32 Year
  Sex: Female

DRUGS (1)
  1. WARFARIN [Suspect]
     Active Substance: WARFARIN
     Indication: Product used for unknown indication
     Route: 065

REACTIONS (8)
  - Toxicity to various agents [Fatal]
  - Anion gap increased [Fatal]
  - Gastrointestinal haemorrhage [Fatal]
  - Haemolysis [Fatal]
  - Coma [Fatal]
  - Depressed level of consciousness [Fatal]
  - Coagulopathy [Fatal]
  - Cardiac arrest [Fatal]
